FAERS Safety Report 6759945-X (Version None)
Quarter: 2010Q2

REPORT INFORMATION
  Report Type: 
  Country: None (occurrence: None)
  Receive Date: 20100604
  Receipt Date: 20100513
  Transmission Date: 20101027
  Serious: Yes (Other)
  Sender: FDA-Public Use
  Company Number: IND1-US-2010-0047

PATIENT
  Age: 17 Year
  Sex: Female

DRUGS (3)
  1. INDOMETHACIN [Suspect]
     Indication: JUVENILE ARTHRITIS
     Dosage: 75 MG ORAL
     Route: 048
     Dates: start: 20100303, end: 20100323
  2. METHOTREXATE (METHOTREXATE) (METHOTREXATE) [Concomitant]
  3. FOLIC ACID (FOLIC ACID) (FOLIC ACID) [Concomitant]

REACTIONS (1)
  - MIGRAINE [None]
